FAERS Safety Report 23599761 (Version 1)
Quarter: 2024Q1

REPORT INFORMATION
  Report Type: Spontaneous
  Country: US (occurrence: US)
  Receive Date: 20240306
  Receipt Date: 20240306
  Transmission Date: 20240410
  Serious: Yes (Other)
  Sender: FDA-Public Use
  Company Number: US-ORGANON-O2401USA002570

PATIENT
  Age: 22 Year
  Sex: Female
  Weight: 133.81 kg

DRUGS (2)
  1. NEXPLANON [Suspect]
     Active Substance: ETONOGESTREL
     Dosage: 1 IMPLANT, 68 MG IN LEFT UPPER ARM (NON-DOMINANT ARM)
     Route: 059
     Dates: start: 202001, end: 20240126
  2. NEXPLANON [Suspect]
     Active Substance: ETONOGESTREL
     Dosage: 1 IMPLANT IN LEFT UPPER ARM (NON-DOMINANT ARM)
     Route: 058
     Dates: start: 20240126

REACTIONS (5)
  - Device dislocation [Recovered/Resolved]
  - Device kink [Recovered/Resolved]
  - Device placement issue [Not Recovered/Not Resolved]
  - Implant site scar [Unknown]
  - Incorrect product administration duration [Unknown]

NARRATIVE: CASE EVENT DATE: 20200101
